FAERS Safety Report 18332328 (Version 1)
Quarter: 2020Q3

REPORT INFORMATION
  Report Type: Spontaneous
  Country: US (occurrence: US)
  Receive Date: 20200930
  Receipt Date: 20200930
  Transmission Date: 20201103
  Serious: Yes (Other)
  Sender: FDA-Public Use
  Company Number: US-PURDUE-USA-2020-0157508

PATIENT
  Sex: Male

DRUGS (3)
  1. OXYCONTIN [Suspect]
     Active Substance: OXYCODONE HYDROCHLORIDE
     Indication: PAIN
     Dosage: 10 TO 60 MILLIGRAM, ONE TABLET, IN THE AM AND NIGHT, STARTED 9 TO 10 YEARS AGO AND END TWO MONTHS B
     Route: 048
  2. OXYCONTIN [Suspect]
     Active Substance: OXYCODONE HYDROCHLORIDE
     Indication: BREAKTHROUGH PAIN
     Dosage: 5 MG ONE TABLET, AS NEEDED, STARTED 9 TO 10 YEARS AGO
     Route: 048
  3. OXYCODONE/ ACETAMINOPHEN TABLETS [Suspect]
     Active Substance: ACETAMINOPHEN\OXYCODONE HYDROCHLORIDE
     Indication: PAIN
     Dosage: 10/500 MILLIGRAM, 4 TIMES A DAY, 9 TO 10 YEARS AGO
     Route: 048

REACTIONS (8)
  - Withdrawal syndrome [Not Recovered/Not Resolved]
  - Partner stress [Unknown]
  - Incorrect drug administration rate [Unknown]
  - Gait disturbance [Not Recovered/Not Resolved]
  - Pain in extremity [Unknown]
  - Suicidal ideation [Unknown]
  - Drug dependence [Unknown]
  - Unevaluable event [Not Recovered/Not Resolved]
